FAERS Safety Report 6816322-0 (Version None)
Quarter: 2010Q3

REPORT INFORMATION
  Report Type: 
  Country: None (occurrence: None)
  Receive Date: 20100705
  Receipt Date: 20100621
  Transmission Date: 20110219
  Serious: Yes (Other)
  Sender: FDA-Public Use
  Company Number: PHHY2010GR37582

PATIENT
  Sex: Female

DRUGS (4)
  1. ACLASTA [Suspect]
     Indication: OSTEOPOROSIS
     Dosage: 5 MG
     Route: 042
     Dates: start: 20100511
  2. ACLASTA [Suspect]
     Dosage: 5MG
     Route: 042
  3. ACLASTA [Suspect]
     Dosage: 5 MG
     Route: 042
  4. ANTIHYPERTENSIVE DRUGS [Concomitant]

REACTIONS (5)
  - DIZZINESS [None]
  - HYPERHIDROSIS [None]
  - HYPERTHYROIDISM [None]
  - NERVOUSNESS [None]
  - TACHYCARDIA [None]
